FAERS Safety Report 7250405-9 (Version None)
Quarter: 2011Q1

REPORT INFORMATION
  Report Type: 
  Country: None (occurrence: None)
  Receive Date: 20110118
  Receipt Date: 20110110
  Transmission Date: 20110831
  Serious: No
  Sender: FDA-Public Use
  Company Number: 2010MA005379

PATIENT
  Sex: Female

DRUGS (1)
  1. BUSPIRONE HYDROCHLORIDE TABLETS, USP 15 MG (AMIDE) (BUSPIRONE) [Suspect]
     Indication: ANXIETY
     Dosage: 15 MG; TID;
     Dates: end: 20101217

REACTIONS (1)
  - CONVULSION [None]
